FAERS Safety Report 10043626 (Version 1)
Quarter: 2014Q1

REPORT INFORMATION
  Report Type: Spontaneous
  Country: US (occurrence: US)
  Receive Date: 20140328
  Receipt Date: 20140328
  Transmission Date: 20141002
  Serious: No
  Sender: FDA-Public Use
  Company Number: US-009507513-1403USA012940

PATIENT
  Age: 21 Year
  Sex: Female
  Weight: 68.27 kg

DRUGS (2)
  1. NEXPLANON [Suspect]
     Indication: CONTRACEPTION
     Dosage: LEFT ARM IMPLANT, 1 ROD UP TO 3 YEARS
     Route: 059
     Dates: start: 20140227
  2. IBUPROFEN [Concomitant]

REACTIONS (2)
  - Muscle spasms [Unknown]
  - Menorrhagia [Unknown]
